FAERS Safety Report 8781199 (Version 4)
Quarter: 2013Q2

REPORT INFORMATION
  Report Type: Spontaneous
  Country: US (occurrence: US)
  Receive Date: 20120913
  Receipt Date: 20130502
  Transmission Date: 20140414
  Serious: Yes (Hospitalization, Other)
  Sender: FDA-Public Use
  Company Number: US-009507513-1209USA001509

PATIENT
  Sex: Female
  Weight: 67.2 kg

DRUGS (3)
  1. FOSAMAX [Suspect]
     Indication: OSTEOPOROSIS
     Dosage: 70 MG, QW
     Route: 048
     Dates: start: 20011107, end: 20110316
  2. CENTRUM SILVER [Concomitant]
     Indication: ROUTINE HEALTH MAINTENANCE
     Dosage: 1 DF, QD
     Dates: start: 1990
  3. CALCIUM (UNSPECIFIED) (+) VITAMIN D (UNSPECIFIED) [Concomitant]
     Indication: ROUTINE HEALTH MAINTENANCE
     Dosage: UNK
     Dates: start: 1990, end: 2012

REACTIONS (34)
  - Femur fracture [Unknown]
  - Respiratory failure [Recovering/Resolving]
  - Pleural effusion [Recovering/Resolving]
  - Mitral valve incompetence [Unknown]
  - Left atrial dilatation [Unknown]
  - Fluid overload [Recovering/Resolving]
  - Atelectasis [Recovering/Resolving]
  - Mitral valve repair [Unknown]
  - Tricuspid valve incompetence [Unknown]
  - Tricuspid valve repair [Unknown]
  - Cardiac operation [Unknown]
  - Intramedullary rod insertion [Unknown]
  - Cardiac operation [Unknown]
  - Implantable defibrillator insertion [Unknown]
  - Fall [Unknown]
  - Muscle strain [Unknown]
  - Mitral valve prolapse [Unknown]
  - Dilatation ventricular [Unknown]
  - Left ventricular hypertrophy [Unknown]
  - Cardiac myxoma [Unknown]
  - Thrombocytopenia [Unknown]
  - Pulmonary hypertension [Unknown]
  - Arrhythmia [Unknown]
  - Foot fracture [Unknown]
  - Foot fracture [Unknown]
  - Glaucoma [Unknown]
  - Cardiac failure congestive [Unknown]
  - Bronchitis [Unknown]
  - Ventricular tachycardia [Recovered/Resolved]
  - Right atrial dilatation [Unknown]
  - Cardiomegaly [Unknown]
  - Hypotension [Unknown]
  - Procedural haemorrhage [Unknown]
  - Heart rate decreased [Unknown]
